FAERS Safety Report 8269044-6 (Version None)
Quarter: 2012Q2

REPORT INFORMATION
  Report Type: 
  Country: None (occurrence: None)
  Receive Date: 20120409
  Receipt Date: 20120405
  Transmission Date: 20120825
  Serious: Yes (Death)
  Sender: FDA-Public Use
  Company Number: CN-BAYER-2012-032083

PATIENT
  Age: 76 Year
  Sex: Male

DRUGS (1)
  1. AVELOX [Suspect]
     Indication: BRONCHITIS CHRONIC
     Dosage: UNK
     Route: 041
     Dates: start: 20110101

REACTIONS (5)
  - URTICARIA [None]
  - PULMONARY EMBOLISM [None]
  - TACHYPNOEA [None]
  - MYOCARDIAL INFARCTION [None]
  - RENAL FAILURE [None]
